FAERS Safety Report 5212260-8 (Version None)
Quarter: 2007Q1

REPORT INFORMATION
  Report Type: 
  Country: None (occurrence: None)
  Receive Date: 20070118
  Receipt Date: 20070112
  Transmission Date: 20070707
  Serious: Yes (Other)
  Sender: FDA-Public Use
  Company Number: FR-ROXANE LABORATORIES, INC-2007-DE-00237GD

PATIENT
  Age: 27 Year
  Sex: Female

DRUGS (6)
  1. PARACETAMOL [Suspect]
  2. METOCLOPRAMIDE [Suspect]
  3. CLARITHROMYCIN [Suspect]
     Route: 048
  4. LOPERAMIDE HCL [Suspect]
  5. EFFITARYL [Suspect]
  6. BACITRACIN [Suspect]

REACTIONS (3)
  - LEUKOPENIA [None]
  - NEUTROPENIA [None]
  - THROMBOCYTOPENIA [None]
